FAERS Safety Report 7843969-5 (Version None)
Quarter: 2011Q4

REPORT INFORMATION
  Report Type: 
  Country: None (occurrence: None)
  Receive Date: 20111025
  Receipt Date: 20111018
  Transmission Date: 20120403
  Serious: Yes (Death, Hospitalization)
  Sender: FDA-Public Use
  Company Number: PHHO2011US11869

PATIENT
  Sex: Female
  Weight: 52 kg

DRUGS (8)
  1. TRACLEER [Concomitant]
     Indication: PULMONARY ARTERIAL HYPERTENSION
     Dosage: 125 MG, BID
     Route: 048
     Dates: start: 20020711
  2. SPIRONOLACTONE [Concomitant]
     Indication: PULMONARY ARTERIAL HYPERTENSION
     Dosage: 50 MG, BID
     Route: 048
     Dates: start: 20101123
  3. REMODULIN [Concomitant]
     Indication: PULMONARY ARTERIAL HYPERTENSION
     Dosage: 73 NG/KG/MIN
     Route: 048
     Dates: start: 20101119
  4. REVATIO [Concomitant]
     Indication: PULMONARY ARTERIAL HYPERTENSION
     Dosage: 40 MG, TID
     Route: 048
     Dates: start: 20050302
  5. FUROSEMIDE [Concomitant]
     Indication: PULMONARY ARTERIAL HYPERTENSION
     Dosage: 40 MG, BID
     Route: 048
     Dates: start: 20100204
  6. IMATINIB MESYLATE [Suspect]
     Dosage: 200 MG, QD
     Route: 048
     Dates: start: 20110713, end: 20110715
  7. IMATINIB MESYLATE [Suspect]
     Indication: PULMONARY ARTERIAL HYPERTENSION
     Dosage: 400 MG, QD
     Route: 048
     Dates: start: 20110511, end: 20110705
  8. METOLAZONE [Suspect]
     Dosage: 2.5 MG, QD
     Route: 048
     Dates: start: 20110702

REACTIONS (3)
  - CARDIAC FAILURE [None]
  - DISEASE PROGRESSION [None]
  - RENAL FAILURE ACUTE [None]
